FAERS Safety Report 5229776-0 (Version None)
Quarter: 2007Q1

REPORT INFORMATION
  Report Type: 
  Country: None (occurrence: None)
  Receive Date: 20070201
  Receipt Date: 20070119
  Transmission Date: 20070707
  Serious: Yes (Hospitalization)
  Sender: FDA-Public Use
  Company Number: 2007RR-05469

PATIENT
  Sex: Female
  Weight: 76.2 kg

DRUGS (3)
  1. FLUOXETINE [Suspect]
     Indication: DEPRESSION
     Dosage: 20 MG, ORAL
     Route: 048
     Dates: start: 19980709, end: 19980712
  2. AMITRIPTYLINE HCL [Concomitant]
  3. CHLORAMPHENICOL [Concomitant]

REACTIONS (1)
  - PANCYTOPENIA [None]
